FAERS Safety Report 23465222 (Version 1)
Quarter: 2024Q1

REPORT INFORMATION
  Report Type: Spontaneous
  Country: BG (occurrence: BG)
  Receive Date: 20240201
  Receipt Date: 20240201
  Transmission Date: 20240409
  Serious: Yes (Life-Threatening, Hospitalization, Other)
  Sender: FDA-Public Use
  Company Number: BG-TEVA-VS-3136365

PATIENT
  Age: 63 Year
  Sex: Female

DRUGS (2)
  1. ALLOPURINOL [Suspect]
     Active Substance: ALLOPURINOL
     Indication: Gout
     Route: 065
  2. EGIRAMLON [Concomitant]
     Indication: Hypertension
     Dosage: 5MG/5MG
     Route: 065

REACTIONS (3)
  - Toxic epidermal necrolysis [Recovered/Resolved]
  - Poisoning [Recovered/Resolved]
  - Haemodynamic instability [Recovered/Resolved]
